FAERS Safety Report 4610303-3 (Version None)
Quarter: 2005Q1

REPORT INFORMATION
  Report Type: 
  Country: None (occurrence: None)
  Receive Date: 20050314
  Receipt Date: 20050303
  Transmission Date: 20050727
  Serious: Yes (Other)
  Sender: FDA-Public Use
  Company Number: 2005040451

PATIENT
  Age: 65 Year
  Sex: Female
  Weight: 55.7924 kg

DRUGS (8)
  1. NEURONTIN [Suspect]
     Indication: ANXIETY
     Dosage: 100 MG (100 MG, 1 IN 1 D), ORAL
     Route: 048
     Dates: end: 20041101
  2. NEURONTIN [Suspect]
     Indication: DEPRESSION
     Dosage: 100 MG (100 MG, 1 IN 1 D), ORAL
     Route: 048
     Dates: end: 20041101
  3. GABAPENTIN [Suspect]
     Indication: ANXIETY
     Dosage: 100 MG (100 MG, 1 IN 1 D), ORAL
     Route: 048
     Dates: start: 20041101
  4. GABAPENTIN [Suspect]
     Indication: DEPRESSION
     Dosage: 100 MG (100 MG, 1 IN 1 D), ORAL
     Route: 048
     Dates: start: 20041101
  5. CLONAZEPAM [Concomitant]
  6. PAROXETINE HCL [Concomitant]
  7. GLYCOPYRRONIUM BROMIDE (GLYCOPYRRONIUM BROMIDE) [Concomitant]
  8. ACETAMINOPHEN [Concomitant]

REACTIONS (3)
  - ATRIAL FIBRILLATION [None]
  - DRUG INEFFECTIVE [None]
  - LUNG NEOPLASM MALIGNANT [None]
